FAERS Safety Report 14837451 (Version 1)
Quarter: 2018Q2

REPORT INFORMATION
  Report Type: Spontaneous
  Country: US (occurrence: US)
  Receive Date: 20180502
  Receipt Date: 20180502
  Transmission Date: 20180711
  Serious: No
  Sender: FDA-Public Use
  Company Number: US-PFIZER INC-2018175016

PATIENT
  Age: 51 Year
  Sex: Female

DRUGS (1)
  1. XELJANZ [Suspect]
     Active Substance: TOFACITINIB CITRATE
     Indication: RHEUMATOID ARTHRITIS
     Dosage: 5 MG, 2X/DAY
     Route: 048
     Dates: start: 20171007, end: 201803

REACTIONS (6)
  - Pain [Unknown]
  - Malaise [Unknown]
  - Influenza [Unknown]
  - Liver function test increased [Unknown]
  - Sinusitis [Unknown]
  - Visual impairment [Unknown]

NARRATIVE: CASE EVENT DATE: 201803
